FAERS Safety Report 9532321 (Version 1)
Quarter: 2013Q2

REPORT INFORMATION
  Report Type: Spontaneous
  Country: FR (occurrence: None)
  Receive Date: 20130403
  Receipt Date: 20130403
  Transmission Date: 20140414
  Serious: Yes (Other)
  Sender: FDA-Public Use
  Company Number: US-2011-10903

PATIENT
  Age: 4 Year
  Sex: Male

DRUGS (3)
  1. BUSULFEX [Suspect]
     Indication: STEM CELL TRANSPLANT
     Route: 042
  2. MELPHALAN [Concomitant]
  3. BENZODIAZEPINE DERIVATIVES [Concomitant]

REACTIONS (1)
  - Venoocclusive liver disease [None]
